FAERS Safety Report 14903537 (Version 1)
Quarter: 2018Q2

REPORT INFORMATION
  Report Type: Report from Study
  Country: US (occurrence: US)
  Receive Date: 20180516
  Receipt Date: 20180516
  Transmission Date: 20180711
  Serious: Yes (Hospitalization)
  Sender: FDA-Public Use
  Company Number: US-LUNDBECK-DKLU2048232

PATIENT
  Age: 9 Month
  Sex: Male

DRUGS (1)
  1. SABRIL [Suspect]
     Active Substance: VIGABATRIN
     Indication: TUBEROUS SCLEROSIS COMPLEX
     Route: 048
     Dates: start: 20170628, end: 20171217

REACTIONS (7)
  - Upper respiratory tract infection [Unknown]
  - Nasal congestion [Unknown]
  - Dermatitis diaper [Unknown]
  - Rhinorrhoea [Unknown]
  - Viral rash [Unknown]
  - Ear infection [Unknown]
  - Diarrhoea [Unknown]

NARRATIVE: CASE EVENT DATE: 20170828
